FAERS Safety Report 10162030 (Version 2)
Quarter: 2014Q2

REPORT INFORMATION
  Report Type: Spontaneous
  Country: US (occurrence: US)
  Receive Date: 20140509
  Receipt Date: 20140509
  Transmission Date: 20141212
  Serious: No
  Sender: FDA-Public Use
  Company Number: US-TEVA-421473USA

PATIENT
  Age: 49 Year
  Sex: Female

DRUGS (5)
  1. CLARAVIS [Suspect]
     Route: 048
     Dates: start: 20130214, end: 20130524
  2. LORATADINE [Concomitant]
  3. FLUTICASONE [Concomitant]
  4. OMEPRAZOLE [Concomitant]
  5. CYCLOBENZAPRINE [Concomitant]

REACTIONS (3)
  - Headache [Not Recovered/Not Resolved]
  - Myalgia [Recovering/Resolving]
  - Arthralgia [Recovering/Resolving]
